FAERS Safety Report 20817609 (Version 1)
Quarter: 2022Q2

REPORT INFORMATION
  Report Type: Spontaneous
  Country: PT (occurrence: PT)
  Receive Date: 20220512
  Receipt Date: 20220512
  Transmission Date: 20220721
  Serious: Yes (Other)
  Sender: FDA-Public Use
  Company Number: PT-TAKEDA-2022TUS017029

PATIENT
  Age: 49 Year
  Sex: Male

DRUGS (2)
  1. HUMAN IMMUNOGLOBULIN G [Suspect]
     Active Substance: HUMAN IMMUNOGLOBULIN G
     Indication: Guillain-Barre syndrome
     Dosage: 0.4 GRAM PER KILOGRAM, QD
     Route: 042
  2. HUMAN IMMUNOGLOBULIN G [Suspect]
     Active Substance: HUMAN IMMUNOGLOBULIN G
     Indication: Acute motor-sensory axonal neuropathy

REACTIONS (2)
  - Therapeutic product effect incomplete [Unknown]
  - Sensory disturbance [Not Recovered/Not Resolved]
